FAERS Safety Report 10660340 (Version 1)
Quarter: 2014Q4

REPORT INFORMATION
  Report Type: Spontaneous
  Country: US (occurrence: US)
  Receive Date: 20141217
  Receipt Date: 20141217
  Transmission Date: 20150529
  Serious: No
  Sender: FDA-Public Use
  Company Number: US-GLAXOSMITHKLINE-A1084369A

PATIENT

DRUGS (10)
  1. BABY ASPIRIN [Concomitant]
     Active Substance: ASPIRIN
  2. THYROID MEDICATION [Concomitant]
     Active Substance: UNSPECIFIED INGREDIENT
  3. BLOOD PRESSURE MEDICATION [Concomitant]
     Active Substance: UNSPECIFIED INGREDIENT
  4. VOTRIENT [Suspect]
     Active Substance: PAZOPANIB HYDROCHLORIDE
     Indication: RENAL CANCER
     Route: 048
     Dates: start: 201103, end: 201406
  5. NERVE MEDICATION [Concomitant]
     Active Substance: UNSPECIFIED INGREDIENT
  6. ANTI-CHOLESTEROL MEDICATION [Concomitant]
     Active Substance: UNSPECIFIED INGREDIENT
  7. STEROID (UNSPECIFIED) [Concomitant]
     Active Substance: UNSPECIFIED INGREDIENT
  8. SUPPLEMENT [Concomitant]
     Active Substance: UNSPECIFIED INGREDIENT
  9. OTHER MEDICATIONS [Concomitant]
     Active Substance: UNSPECIFIED INGREDIENT
  10. VITAMIN PILLS [Concomitant]

REACTIONS (2)
  - Blood creatinine increased [Unknown]
  - Blood albumin decreased [Unknown]
